FAERS Safety Report 17348189 (Version 11)
Quarter: 2020Q4

REPORT INFORMATION
  Report Type: Spontaneous
  Country: US (occurrence: US)
  Receive Date: 20200130
  Receipt Date: 20201214
  Transmission Date: 20210113
  Serious: Yes (Hospitalization, Other)
  Sender: FDA-Public Use
  Company Number: US-PFIZER INC-2020039215

PATIENT
  Age: 65 Year
  Sex: Female
  Weight: 82 kg

DRUGS (11)
  1. XELJANZ XR [Suspect]
     Active Substance: TOFACITINIB CITRATE
     Dosage: 11 MG, 1X/DAY
     Route: 048
     Dates: start: 20191231, end: 2020
  2. XARELTO [Concomitant]
     Active Substance: RIVAROXABAN
     Indication: ATRIAL FIBRILLATION
  3. CALCIUM + VITAMIN D [Concomitant]
     Active Substance: CALCIUM\VITAMIN D
     Dosage: UNK
     Dates: start: 2010
  4. XARELTO [Concomitant]
     Active Substance: RIVAROXABAN
     Indication: SLEEP APNOEA SYNDROME
  5. SOTALOL. [Concomitant]
     Active Substance: SOTALOL
     Indication: HEART RATE ABNORMAL
     Dosage: 80 MG, 2X/DAY
     Route: 048
     Dates: start: 2018
  6. XARELTO [Concomitant]
     Active Substance: RIVAROXABAN
     Indication: ANTICOAGULANT THERAPY
     Dosage: 20 MG, 1X/DAY
     Route: 048
     Dates: start: 2011
  7. PROLIA [Concomitant]
     Active Substance: DENOSUMAB
     Dosage: UNK
  8. ESCITALOPRAM [Concomitant]
     Active Substance: ESCITALOPRAM OXALATE
     Indication: STRESS
     Dosage: 20 MG, 1X/DAY
     Route: 048
     Dates: start: 201909
  9. XELJANZ XR [Suspect]
     Active Substance: TOFACITINIB CITRATE
     Indication: RHEUMATOID ARTHRITIS
     Dosage: UNK
     Route: 048
  10. MIRALAX [Concomitant]
     Active Substance: POLYETHYLENE GLYCOL 3350
     Dosage: UNK, AS NEEDED
     Dates: start: 2019
  11. PRIMIDONE. [Concomitant]
     Active Substance: PRIMIDONE
     Indication: EPILEPSY
     Dosage: 1250 MG, 1X/DAY
     Route: 048

REACTIONS (17)
  - Head injury [Unknown]
  - Pain in extremity [Not Recovered/Not Resolved]
  - Body height decreased [Unknown]
  - Hand fracture [Unknown]
  - Fall [Unknown]
  - Spinal stenosis [Unknown]
  - Constipation [Unknown]
  - Incoherent [Unknown]
  - Gait disturbance [Not Recovered/Not Resolved]
  - Skin laceration [Unknown]
  - Road traffic accident [Unknown]
  - Confusional state [Unknown]
  - Dysgraphia [Not Recovered/Not Resolved]
  - Atrial fibrillation [Unknown]
  - Haemorrhoids [Unknown]
  - Malaise [Recovering/Resolving]
  - Emotional distress [Unknown]

NARRATIVE: CASE EVENT DATE: 2016
